FAERS Safety Report 9942556 (Version 1)
Quarter: 2014Q1

REPORT INFORMATION
  Report Type: Report from Study
  Country: US (occurrence: US)
  Receive Date: 20140303
  Receipt Date: 20140303
  Transmission Date: 20141002
  Serious: No
  Sender: FDA-Public Use
  Company Number: US-ABBVIE-13P-163-1044514-00

PATIENT
  Age: 52 Year
  Sex: Female

DRUGS (10)
  1. HUMIRA [Suspect]
     Indication: CROHN^S DISEASE
     Route: 058
     Dates: start: 201211
  2. ASACOL HD [Concomitant]
     Indication: CROHN^S DISEASE
  3. GABAPENTIN [Concomitant]
     Indication: RESTLESS LEGS SYNDROME
     Dosage: HOUR OF SLEEP
  4. BENAZEPRIL [Concomitant]
     Indication: BLOOD PRESSURE
  5. TAMAZEPAM [Concomitant]
     Indication: INSOMNIA
     Dosage: HOUR OF SLEEP
  6. TRIMETHOPRIM [Concomitant]
     Indication: PROPHYLAXIS
     Dosage: HOUR OF SLEEP
  7. JINTELI [Concomitant]
     Indication: MENOPAUSAL SYMPTOMS
     Dosage: 1MG/5MG AT HOUR OF SLEEP
  8. LEXAPRO [Concomitant]
     Indication: DEPRESSION
  9. SPIRONOLACTONE [Concomitant]
     Indication: BLOOD PRESSURE
     Dosage: 25/25MG DAILY
  10. VITAMIN D [Concomitant]
     Indication: PRODUCT USED FOR UNKNOWN INDICATION
     Dosage: 1000-4000 IU DAILY

REACTIONS (10)
  - Acne [Recovered/Resolved]
  - Blister [Recovered/Resolved]
  - Fatigue [Recovering/Resolving]
  - Arthralgia [Recovering/Resolving]
  - Nasal congestion [Recovering/Resolving]
  - Headache [Recovering/Resolving]
  - Pain in extremity [Recovered/Resolved]
  - Wrong technique in drug usage process [Recovered/Resolved]
  - Drug dose omission [Recovered/Resolved]
  - Pain [Recovered/Resolved]
